FAERS Safety Report 8194206 (Version 3)
Quarter: 2012Q4

REPORT INFORMATION
  Report Type: 
  Country: US (occurrence: US)
  Receive Date: 20111022
  Receipt Date: 20120905
  Transmission Date: 20130627
  Serious: Yes (Other)
  Sender: FDA-Public Use
  Company Number: US-BAYER-2011-098690

PATIENT
  Age: 15 Year
  Sex: Female
  Weight: 52.15 kg

DRUGS (15)
  1. YAZ [Suspect]
     Indication: ACNE
     Dosage: UNK UNK, QD
     Route: 048
     Dates: start: 2008, end: 2010
  2. YAZ [Suspect]
     Indication: PREMENSTRUAL SYNDROME
  3. YAZ [Suspect]
     Indication: MENORRHAGIA
  4. YAZ [Suspect]
     Indication: DYSMENORRHOEA
  5. SMZ-TMP [Concomitant]
     Dosage: 800-160
  6. FLUCONAZOLE [Concomitant]
  7. METRONIDAZOLE [Concomitant]
  8. METHYLPREDNISOLONE [Concomitant]
  9. AZITHROMYCIN [Concomitant]
  10. MELOXICAM [Concomitant]
  11. MULTIVITAMIN [Concomitant]
  12. PHENAZOPYRIDINE [Concomitant]
  13. NYSTATIN [Concomitant]
  14. HYDROCODONE W/ACETAMINOPHEN [Concomitant]
     Dosage: 5-500 mg
  15. PROMETHAZINE [Concomitant]

REACTIONS (11)
  - Pulmonary embolism [None]
  - Deep vein thrombosis [None]
  - Myocardial infarction [None]
  - Cerebrovascular accident [None]
  - Gallbladder disorder [None]
  - Biliary dyskinesia [None]
  - Fear [None]
  - Injury [None]
  - Pain [None]
  - Diarrhoea [None]
  - Dyspepsia [None]
